FAERS Safety Report 8796813 (Version 2)
Quarter: 2012Q4

REPORT INFORMATION
  Report Type: 
  Country: US (occurrence: US)
  Receive Date: 20120917
  Receipt Date: 20121129
  Transmission Date: 20130627
  Serious: Yes (Death)
  Sender: FDA-Public Use
  Company Number: US-ROCHE-1127648

PATIENT
  Sex: Female

DRUGS (4)
  1. AVASTIN [Suspect]
     Indication: BREAST CANCER FEMALE
     Route: 042
     Dates: start: 20050622, end: 20050929
  2. ABRAXANE [Concomitant]
  3. ZOMETA [Concomitant]
  4. DOXIL (UNITED STATES) [Concomitant]

REACTIONS (1)
  - Death [Fatal]
